FAERS Safety Report 10221986 (Version 1)
Quarter: 2014Q2

REPORT INFORMATION
  Report Type: Spontaneous
  Country: DE (occurrence: DE)
  Receive Date: 20140606
  Receipt Date: 20140606
  Transmission Date: 20141212
  Serious: Yes (Other)
  Sender: FDA-Public Use
  Company Number: DE-DSJP-DSE-2014-110501

PATIENT
  Sex: 0

DRUGS (1)
  1. VOCADO [Suspect]
     Indication: HYPERTENSION
     Dosage: 1 DF, QD
     Route: 048

REACTIONS (2)
  - Ocular discomfort [Not Recovered/Not Resolved]
  - Retinal oedema [Not Recovered/Not Resolved]
